FAERS Safety Report 25862432 (Version 1)
Quarter: 2025Q3

REPORT INFORMATION
  Report Type: Spontaneous
  Country: EU (occurrence: EU)
  Receive Date: 20250930
  Receipt Date: 20250930
  Transmission Date: 20251020
  Serious: Yes (Other)
  Sender: AUROBINDO
  Company Number: EU-AFSSAPS-DJ2025001515

PATIENT
  Age: 89 Year
  Sex: Male
  Weight: 56.7 kg

DRUGS (1)
  1. LEVOFLOXACIN [Suspect]
     Active Substance: LEVOFLOXACIN
     Indication: Urinary tract infection
     Dosage: 500 MILLIGRAM, ONCE A DAY
     Route: 048
     Dates: start: 20250818, end: 20250820

REACTIONS (2)
  - Priapism [Recovered/Resolved]
  - Spontaneous penile erection [Recovered/Resolved]

NARRATIVE: CASE EVENT DATE: 20250819
